FAERS Safety Report 9014415 (Version 1)
Quarter: 2013Q1

REPORT INFORMATION
  Report Type: Spontaneous
  Country: DE (occurrence: DE)
  Receive Date: 20130115
  Receipt Date: 20130115
  Transmission Date: 20140127
  Serious: Yes (Other)
  Sender: FDA-Public Use
  Company Number: DE-BAYER-2013-004399

PATIENT
  Sex: Female

DRUGS (1)
  1. AVALOX [Suspect]

REACTIONS (2)
  - Tendonitis [Not Recovered/Not Resolved]
  - Cardiac valve disease [None]
